FAERS Safety Report 5453880-5 (Version None)
Quarter: 2007Q3

REPORT INFORMATION
  Report Type: 
  Country: None (occurrence: None)
  Receive Date: 20070917
  Receipt Date: 20070913
  Transmission Date: 20080115
  Serious: Yes (Other)
  Sender: FDA-Public Use
  Company Number: B0486867A

PATIENT
  Age: 43 Year
  Sex: Male
  Weight: 60 kg

DRUGS (23)
  1. ALKERAN [Suspect]
     Indication: CORD BLOOD TRANSPLANT THERAPY
     Dosage: 100MG PER DAY
     Route: 042
     Dates: start: 20070201, end: 20070203
  2. UNKNOWN DRUG [Concomitant]
     Indication: CORD BLOOD TRANSPLANT THERAPY
     Dosage: 800MG PER DAY
     Route: 048
     Dates: start: 20070130, end: 20070204
  3. NEUTROGIN [Concomitant]
     Dates: start: 20070208, end: 20070308
  4. TACROLIMUS HYDRATE [Concomitant]
     Route: 065
     Dates: start: 20070206, end: 20070415
  5. METHOTREXATE [Concomitant]
     Route: 065
     Dates: start: 20070208
  6. SOLU-MEDROL [Concomitant]
     Dosage: 1G PER DAY
     Route: 042
     Dates: start: 20070611, end: 20070622
  7. PREDONINE [Concomitant]
     Route: 065
     Dates: start: 20070623
  8. ITRIZOLE [Concomitant]
     Route: 048
     Dates: end: 20070602
  9. MUCODYNE [Concomitant]
     Route: 048
  10. ZANTAC 150 [Concomitant]
     Route: 048
     Dates: end: 20070301
  11. MIYA BM [Concomitant]
     Route: 048
  12. URSO 250 [Concomitant]
     Route: 048
  13. DENOSINE (GANCICLOVIR) [Concomitant]
     Dates: start: 20070302, end: 20070320
  14. FOSCAVIR [Concomitant]
     Dosage: 9G PER DAY
     Route: 042
     Dates: start: 20070321, end: 20070715
  15. ARASENA-A [Concomitant]
     Route: 042
     Dates: start: 20070519, end: 20070523
  16. MAXIPIME [Concomitant]
     Route: 042
     Dates: start: 20070208, end: 20070212
  17. MEROPEN [Concomitant]
     Route: 042
     Dates: start: 20070213, end: 20070221
  18. CIPROFLOXACIN [Concomitant]
     Route: 042
     Dates: start: 20070221, end: 20070224
  19. TIENAM [Concomitant]
     Dates: start: 20070224, end: 20070307
  20. TAGAMET [Concomitant]
     Route: 042
     Dates: start: 20070224, end: 20070305
  21. CLAFORAN [Concomitant]
     Dates: start: 20070424, end: 20070501
  22. OXYCONTIN [Concomitant]
     Route: 048
     Dates: start: 20070418, end: 20070423
  23. DIFLUCAN [Concomitant]
     Route: 048
     Dates: start: 20070603

REACTIONS (1)
  - MELAENA [None]
